FAERS Safety Report 10288124 (Version 1)
Quarter: 2014Q3

REPORT INFORMATION
  Report Type: Spontaneous
  Country: US (occurrence: US)
  Receive Date: 20140709
  Receipt Date: 20140709
  Transmission Date: 20150326
  Serious: No
  Sender: FDA-Public Use
  Company Number: US-009507513-1407USA004445

PATIENT
  Sex: Female

DRUGS (1)
  1. DR. SCHOLL^S FOR HER ULTRA OVERNIGHT FOOT CREAM [Suspect]
     Active Substance: CAMPHOR (NATURAL)\MENTHOL\METHYL SALICYLATE
     Indication: PRODUCT USED FOR UNKNOWN INDICATION
     Dosage: UNK, UNKNOWN
     Route: 061

REACTIONS (1)
  - Therapeutic product ineffective [Unknown]
